FAERS Safety Report 9323329 (Version 2)
Quarter: 2013Q2

REPORT INFORMATION
  Report Type: Spontaneous
  Country: PH (occurrence: PH)
  Receive Date: 20130603
  Receipt Date: 20130618
  Transmission Date: 20140414
  Serious: Yes (Hospitalization)
  Sender: FDA-Public Use
  Company Number: PH-BRACCO-000042

PATIENT
  Age: 31 Month
  Sex: Male
  Weight: 9.6 kg

DRUGS (1)
  1. E-Z-HD [Suspect]
     Indication: X-RAY WITH CONTRAST UPPER GASTROINTESTINAL TRACT
     Dosage: ONE DOSE
     Route: 048
     Dates: start: 20130209, end: 20130209

REACTIONS (3)
  - Poor quality drug administered [Recovered/Resolved]
  - Abdominal mass [Recovered/Resolved]
  - Constipation [Recovered/Resolved]
